FAERS Safety Report 21640849 (Version 2)
Quarter: 2025Q1

REPORT INFORMATION
  Report Type: Report from Study
  Country: US (occurrence: US)
  Receive Date: 20221125
  Receipt Date: 20250327
  Transmission Date: 20250409
  Serious: Yes (Other)
  Sender: ABBVIE
  Company Number: US-ABBVIE-4212971

PATIENT
  Age: 72 Year
  Sex: Female

DRUGS (2)
  1. IMBRUVICA [Suspect]
     Active Substance: IBRUTINIB
     Indication: Chronic lymphocytic leukaemia
     Route: 048
  2. IMBRUVICA [Suspect]
     Active Substance: IBRUTINIB
     Indication: Chronic lymphocytic leukaemia
     Route: 048
     Dates: start: 202502

REACTIONS (18)
  - Immune thrombocytopenia [Unknown]
  - Vomiting [Unknown]
  - Diarrhoea [Unknown]
  - Irritable bowel syndrome [Unknown]
  - Neuropathy peripheral [Unknown]
  - Rheumatoid arthritis [Unknown]
  - Hypertension [Unknown]
  - Autoimmune disorder [Unknown]
  - Dyspnoea [Unknown]
  - Dizziness [Unknown]
  - Sinusitis [Unknown]
  - Bronchitis [Unknown]
  - Hypothyroidism [Unknown]
  - Cataract [Unknown]
  - Rotator cuff syndrome [Unknown]
  - Photosensitivity reaction [Unknown]
  - COVID-19 [Unknown]
  - Tonsillectomy [Unknown]

NARRATIVE: CASE EVENT DATE: 20070101
